FAERS Safety Report 20621509 (Version 1)
Quarter: 2022Q1

REPORT INFORMATION
  Report Type: Spontaneous
  Country: US (occurrence: US)
  Receive Date: 20220322
  Receipt Date: 20220322
  Transmission Date: 20220423
  Serious: Yes (Other)
  Sender: FDA-Public Use
  Company Number: US-MYLANLABS-2022M1021176

PATIENT
  Sex: Male

DRUGS (1)
  1. EDLUAR [Suspect]
     Active Substance: ZOLPIDEM TARTRATE
     Indication: Product used for unknown indication
     Dosage: 10 MILLIGRAM
     Dates: start: 202203

REACTIONS (4)
  - Hallucination [Unknown]
  - Peripheral swelling [Unknown]
  - Intentional product misuse [Unknown]
  - Somnolence [Unknown]

NARRATIVE: CASE EVENT DATE: 20220301
